FAERS Safety Report 5638164-4 (Version None)
Quarter: 2008Q1

REPORT INFORMATION
  Report Type: 
  Country: None (occurrence: None)
  Receive Date: 20080226
  Receipt Date: 20080211
  Transmission Date: 20080703
  Serious: Yes (Life-Threatening, Other)
  Sender: FDA-Public Use
  Company Number: IT-ELI_LILLY_AND_COMPANY-EWC051046830

PATIENT
  Age: 78 Year
  Sex: Male

DRUGS (5)
  1. XIGRIS [Suspect]
     Indication: PNEUMONIA
     Dosage: 24 UG/KG/HR, UNKNOWN
     Route: 042
     Dates: start: 20051019, end: 20051020
  2. HEPARIN [Concomitant]
     Dosage: 4000 IU, UNKNOWN
     Route: 042
     Dates: start: 20051020
  3. ROCEPHIN [Concomitant]
     Indication: SEPSIS
     Dosage: 2 GR, OTHER
     Route: 042
     Dates: start: 20051017, end: 20051020
  4. CLEXANE [Concomitant]
     Indication: PROPHYLAXIS
     Dosage: 4000 IU, UNKNOWN
     Route: 023
     Dates: start: 20051018, end: 20051101
  5. CORDARONE [Concomitant]
     Indication: ARRHYTHMIA
     Route: 042
     Dates: start: 20051018, end: 20051019

REACTIONS (1)
  - THROMBOCYTOPENIA [None]
